FAERS Safety Report 9170272 (Version 1)
Quarter: 2013Q1

REPORT INFORMATION
  Report Type: Report from Study
  Country: US (occurrence: US)
  Receive Date: 20130319
  Receipt Date: 20130319
  Transmission Date: 20140127
  Serious: No
  Sender: FDA-Public Use
  Company Number: US-009507513-1303USA007351

PATIENT
  Sex: Female

DRUGS (3)
  1. VICTRELIS [Suspect]
     Indication: CHRONIC HEPATITIS C
     Dosage: UNK
  2. REBETOL [Suspect]
     Indication: CHRONIC HEPATITIS C
     Dosage: DOSE:1200 MG, QD, DIVIDED DOSE
     Dates: start: 20110729
  3. PEGINTERFERON ALFA-2A [Suspect]
     Indication: CHRONIC HEPATITIS C
     Dosage: FORMULATION: PRE-FILLED SYRINGE
     Dates: start: 20110729

REACTIONS (1)
  - Hepatitis C [Unknown]
